FAERS Safety Report 11204855 (Version 1)
Quarter: 2015Q2

REPORT INFORMATION
  Report Type: Spontaneous
  Country: DE (occurrence: DE)
  Receive Date: 20150622
  Receipt Date: 20150622
  Transmission Date: 20150821
  Serious: Yes (Other)
  Sender: FDA-Public Use
  Company Number: DE-DRREDDYS-GER/GER/15/0048756

PATIENT
  Age: 61 Year
  Sex: Female
  Weight: 62 kg

DRUGS (1)
  1. OMEPRAZOLE. [Suspect]
     Active Substance: OMEPRAZOLE
     Indication: GASTRITIS
     Route: 048
     Dates: start: 20150126

REACTIONS (8)
  - Muscular weakness [Recovered/Resolved]
  - Blood glucose decreased [Unknown]
  - Circulatory collapse [Unknown]
  - Salivary gland cyst [Unknown]
  - Vision blurred [Unknown]
  - Headache [Unknown]
  - Tinnitus [Unknown]
  - Tongue ulceration [Unknown]

NARRATIVE: CASE EVENT DATE: 20150129
